FAERS Safety Report 7804418-6 (Version None)
Quarter: 2011Q4

REPORT INFORMATION
  Report Type: 
  Country: None (occurrence: None)
  Receive Date: 20111010
  Receipt Date: 20110928
  Transmission Date: 20120403
  Serious: Yes (Hospitalization)
  Sender: FDA-Public Use
  Company Number: US-BAYER-2011-070039

PATIENT
  Age: 38 Year
  Sex: Female
  Weight: 73 kg

DRUGS (1)
  1. YAZ [Suspect]
     Indication: CONTRACEPTION
     Dosage: UNK
     Dates: start: 20090701, end: 20090901

REACTIONS (7)
  - HYPOAESTHESIA [None]
  - SUBCLAVIAN VEIN THROMBOSIS [None]
  - OEDEMA PERIPHERAL [None]
  - ERYTHEMA [None]
  - PARAESTHESIA [None]
  - PAIN IN EXTREMITY [None]
  - INJURY [None]
